FAERS Safety Report 17716008 (Version 1)
Quarter: 2020Q2

REPORT INFORMATION
  Report Type: Spontaneous
  Country: DE (occurrence: DE)
  Receive Date: 20200428
  Receipt Date: 20200428
  Transmission Date: 20200714
  Serious: Yes (Other)
  Sender: FDA-Public Use
  Company Number: DE-ACCORD-179741

PATIENT
  Age: 1 Day
  Sex: Male
  Weight: 2.57 kg

DRUGS (3)
  1. DULOXETINE. [Suspect]
     Active Substance: DULOXETINE
     Indication: DEPRESSION
     Dosage: 30 MG/D
     Route: 064
     Dates: start: 20171216, end: 20180924
  2. CLEXANE [Concomitant]
     Active Substance: ENOXAPARIN SODIUM
     Indication: THROMBOSIS PROPHYLAXIS
     Dosage: 80 MG/D
     Route: 064
  3. QUETIAPINE. [Suspect]
     Active Substance: QUETIAPINE
     Indication: SLEEP DISORDER
     Dosage: 75 MG/D
     Route: 064
     Dates: start: 20171216, end: 20180924

REACTIONS (4)
  - Foetal exposure during pregnancy [Unknown]
  - Neonatal tachypnoea [Recovered/Resolved]
  - Respiratory disorder neonatal [Recovered/Resolved]
  - Small for dates baby [Recovered/Resolved]

NARRATIVE: CASE EVENT DATE: 20180924
